FAERS Safety Report 9055332 (Version 1)
Quarter: 2013Q1

REPORT INFORMATION
  Report Type: Spontaneous
  Country: MX (occurrence: MX)
  Receive Date: 20130206
  Receipt Date: 20130206
  Transmission Date: 20140127
  Serious: Yes (Other)
  Sender: FDA-Public Use
  Company Number: MX-ROCHE-1184199

PATIENT
  Age: 57 Year
  Sex: Female

DRUGS (1)
  1. BONVIVA [Suspect]
     Indication: OSTEOPOROSIS
     Route: 042
     Dates: start: 20130103

REACTIONS (3)
  - Oedema [Recovered/Resolved]
  - Phlebitis [Recovering/Resolving]
  - Injection site pain [Not Recovered/Not Resolved]
